FAERS Safety Report 6594255-5 (Version None)
Quarter: 2010Q1

REPORT INFORMATION
  Report Type: 
  Country: None (occurrence: None)
  Receive Date: 20100222
  Receipt Date: 20100216
  Transmission Date: 20100710
  Serious: Yes (Hospitalization, Disabling, Other)
  Sender: FDA-Public Use
  Company Number: US-MERCK-0910USA01177

PATIENT
  Age: 57 Year
  Sex: Female
  Weight: 61 kg

DRUGS (20)
  1. FOSAMAX [Suspect]
     Indication: OSTEOPOROSIS
     Route: 048
     Dates: start: 19990501, end: 19990706
  2. FOSAMAX [Suspect]
     Route: 048
     Dates: start: 20030301, end: 20070401
  3. FOSAMAX [Suspect]
     Route: 048
     Dates: start: 19990701, end: 19991115
  4. FOSAMAX [Suspect]
     Route: 048
     Dates: start: 19991101, end: 19990101
  5. FOSAMAX [Suspect]
     Route: 048
     Dates: start: 20020901, end: 20030301
  6. FOSAMAX [Suspect]
     Route: 048
     Dates: start: 19990101, end: 20020901
  7. FOSAMAX [Suspect]
     Indication: OSTEOPENIA
     Route: 048
     Dates: start: 19990501, end: 19990706
  8. FOSAMAX [Suspect]
     Route: 048
     Dates: start: 20030301, end: 20070401
  9. FOSAMAX [Suspect]
     Route: 048
     Dates: start: 19990701, end: 19991115
  10. FOSAMAX [Suspect]
     Route: 048
     Dates: start: 19991101, end: 19990101
  11. FOSAMAX [Suspect]
     Route: 048
     Dates: start: 20020901, end: 20030301
  12. FOSAMAX [Suspect]
     Route: 048
     Dates: start: 19990101, end: 20020901
  13. CALCIUM (UNSPECIFIED) [Concomitant]
     Indication: OSTEOPOROSIS
     Route: 065
  14. CALCIUM (UNSPECIFIED) [Concomitant]
     Indication: OSTEOPENIA
     Route: 065
  15. VITAMIN D (UNSPECIFIED) [Concomitant]
     Indication: OSTEOPENIA
     Route: 065
  16. VITAMIN D (UNSPECIFIED) [Concomitant]
     Indication: OSTEOPOROSIS
     Route: 065
  17. PRILOSEC [Suspect]
     Route: 065
  18. LEVSINEX TIMECAPS [Concomitant]
     Route: 065
  19. MIACALCIN [Concomitant]
     Route: 065
     Dates: end: 20030605
  20. PREMARIN [Concomitant]
     Indication: OESTROGEN REPLACEMENT THERAPY
     Route: 065
     Dates: start: 19760101, end: 20030605

REACTIONS (68)
  - ACQUIRED OESOPHAGEAL WEB [None]
  - ADVERSE EVENT [None]
  - ALLERGIC SINUSITIS [None]
  - ALLERGY TO ARTHROPOD STING [None]
  - ANAEMIA [None]
  - ANKLE FRACTURE [None]
  - ANXIETY [None]
  - ARTHRITIS [None]
  - ASTHMA [None]
  - BACK PAIN [None]
  - BLEPHARITIS [None]
  - BREAST CANCER STAGE II [None]
  - BRONCHIAL HYPERREACTIVITY [None]
  - CALCIUM METABOLISM DISORDER [None]
  - CONTUSION [None]
  - DEPRESSION [None]
  - DIARRHOEA [None]
  - DRUG INEFFECTIVE [None]
  - DYSPHAGIA [None]
  - DYSURIA [None]
  - ECCHYMOSIS [None]
  - FALL [None]
  - FEMUR FRACTURE [None]
  - GASTRIC DISORDER [None]
  - GASTROINTESTINAL DISORDER [None]
  - GASTROOESOPHAGEAL REFLUX DISEASE [None]
  - GENITAL HERPES [None]
  - GRANULOMA [None]
  - HAEMATOMA [None]
  - HEADACHE [None]
  - HYPERCALCAEMIA [None]
  - HYPERCHOLESTEROLAEMIA [None]
  - HYPERLIPIDAEMIA [None]
  - HYPERSENSITIVITY [None]
  - HYPERTENSION [None]
  - HYPOKALAEMIA [None]
  - INAPPROPRIATE SCHEDULE OF DRUG ADMINISTRATION [None]
  - INSOMNIA [None]
  - IRON DEFICIENCY ANAEMIA [None]
  - IRRITABILITY [None]
  - IRRITABLE BOWEL SYNDROME [None]
  - LOW TURNOVER OSTEOPATHY [None]
  - MACROCYTOSIS [None]
  - METASTASES TO LYMPH NODES [None]
  - MILK ALLERGY [None]
  - NASAL CONGESTION [None]
  - NAUSEA [None]
  - NERVE ROOT INJURY CERVICAL [None]
  - NEUROMA [None]
  - OESOPHAGEAL OBSTRUCTION [None]
  - OSTEOPOROSIS [None]
  - OVERDOSE [None]
  - PANCREATIC MASS [None]
  - PANCREATITIS [None]
  - PLEURAL EFFUSION [None]
  - PLEURISY [None]
  - PNEUMONIA [None]
  - PULMONARY FIBROSIS [None]
  - RHINITIS ALLERGIC [None]
  - ROTATOR CUFF SYNDROME [None]
  - SINUSITIS [None]
  - SOMNOLENCE [None]
  - SPINAL COMPRESSION FRACTURE [None]
  - SQUAMOUS CELL CARCINOMA OF SKIN [None]
  - TENDON RUPTURE [None]
  - URINARY INCONTINENCE [None]
  - WHIPLASH INJURY [None]
  - WRONG TECHNIQUE IN DRUG USAGE PROCESS [None]
